FAERS Safety Report 8465872-2 (Version None)
Quarter: 2012Q2

REPORT INFORMATION
  Report Type: 
  Country: None (occurrence: None)
  Receive Date: 20120626
  Receipt Date: 20120619
  Transmission Date: 20120825
  Serious: Yes (Hospitalization)
  Sender: FDA-Public Use
  Company Number: FR-PFIZER INC-2012095905

PATIENT
  Age: 69 Year
  Sex: Male
  Weight: 80 kg

DRUGS (8)
  1. NEURONTIN [Concomitant]
     Dosage: 100 MG, 3X/DAY
  2. TORISEL [Suspect]
     Indication: MANTLE CELL LYMPHOMA
     Dosage: 75 MG, WEEKLY
     Dates: start: 20120111, end: 20120229
  3. TORISEL [Suspect]
     Dosage: 50 MG, UNK
     Dates: start: 20120325, end: 20120404
  4. LEXOMIL [Concomitant]
     Dosage: 0.25 DF, 1X/DAY
  5. VALACYCLOVIR HYDROCHLORIDE [Concomitant]
     Dosage: 500 MG, 1X/DAY
  6. INNOHEP [Concomitant]
     Dosage: 0.7 ML, 1X/DAY
  7. ACETAMINOPHEN [Concomitant]
     Dosage: 1 G, 3X/DAY
  8. PANTOPRAZOLE SODIUM [Concomitant]
     Dosage: 20 MG, 1X/DAY

REACTIONS (2)
  - LYMPHOPENIA [None]
  - INTERSTITIAL LUNG DISEASE [None]
